FAERS Safety Report 11095980 (Version 3)
Quarter: 2015Q2

REPORT INFORMATION
  Report Type: Spontaneous
  Country: US (occurrence: US)
  Receive Date: 20150507
  Receipt Date: 20150608
  Transmission Date: 20150821
  Serious: Yes (Hospitalization, Other)
  Sender: FDA-Public Use
  Company Number: US-MERCK-1505USA000110

PATIENT
  Age: 62 Year
  Sex: Female

DRUGS (2)
  1. TEMODAR [Suspect]
     Active Substance: TEMOZOLOMIDE
     Indication: AESTHESIONEUROBLASTOMA
     Dosage: 1 TABLET DAILY FOR 21 DAYS
     Route: 048
     Dates: start: 201406
  2. AVASTIN [Suspect]
     Active Substance: BEVACIZUMAB
     Indication: AESTHESIONEUROBLASTOMA
     Dosage: UNK
     Dates: start: 201406

REACTIONS (2)
  - Pneumonia [Unknown]
  - Malignant neoplasm progression [Unknown]

NARRATIVE: CASE EVENT DATE: 201501
